FAERS Safety Report 22530830 (Version 1)
Quarter: 2023Q2

REPORT INFORMATION
  Report Type: Spontaneous
  Country: CH (occurrence: CH)
  Receive Date: 20230607
  Receipt Date: 20230607
  Transmission Date: 20230722
  Serious: Yes (Other)
  Sender: FDA-Public Use
  Company Number: CH-GLAXOSMITHKLINE-CH2023GSK079433

PATIENT

DRUGS (1)
  1. LAMOTRIGINE [Suspect]
     Active Substance: LAMOTRIGINE
     Indication: Epilepsy
     Dosage: UNK

REACTIONS (15)
  - Toxic epidermal necrolysis [Recovering/Resolving]
  - Severe cutaneous adverse reaction [Recovering/Resolving]
  - Epidermal necrosis [Recovering/Resolving]
  - Dermatitis bullous [Recovering/Resolving]
  - Rash [Recovering/Resolving]
  - Enanthema [Recovering/Resolving]
  - Rash papular [Recovering/Resolving]
  - Pyrexia [Recovering/Resolving]
  - Conjunctivitis [Recovering/Resolving]
  - Odynophagia [Recovering/Resolving]
  - Oral disorder [Recovering/Resolving]
  - Genital lesion [Recovering/Resolving]
  - Eye disorder [Recovering/Resolving]
  - Dermatitis contact [Recovering/Resolving]
  - Lichenoid keratosis [Recovering/Resolving]
